FAERS Safety Report 8092456-0 (Version None)
Quarter: 2012Q1

REPORT INFORMATION
  Report Type: 
  Country: None (occurrence: None)
  Receive Date: 20120128
  Receipt Date: 20110826
  Transmission Date: 20120608
  Serious: No
  Sender: FDA-Public Use
  Company Number: US-ABBOTT-11P-163-0850184-00

PATIENT
  Sex: Female

DRUGS (2)
  1. SIMVASTATIN [Concomitant]
     Indication: BLOOD CHOLESTEROL INCREASED
     Dosage: UNKNOWN
  2. HUMIRA [Suspect]
     Indication: RHEUMATOID ARTHRITIS
     Route: 058
     Dates: start: 20110501

REACTIONS (4)
  - CYSTITIS [None]
  - DRUG INEFFECTIVE [None]
  - FATIGUE [None]
  - UPPER RESPIRATORY TRACT INFECTION [None]
